FAERS Safety Report 5768826-X (Version None)
Quarter: 2008Q2

REPORT INFORMATION
  Report Type: 
  Country: None (occurrence: None)
  Receive Date: 20080612
  Receipt Date: 20080312
  Transmission Date: 20081010
  Serious: No
  Sender: FDA-Public Use
  Company Number: US-ABBOTT-08P-163-0442517-00

PATIENT
  Age: 38 Year
  Sex: Male

DRUGS (3)
  1. HUMIRA [Suspect]
     Indication: ANKYLOSING SPONDYLITIS
     Route: 058
  2. HUMIRA [Suspect]
  3. HUMIRA [Suspect]

REACTIONS (5)
  - DRUG INEFFECTIVE [None]
  - HERPES OPHTHALMIC [None]
  - HERPES ZOSTER [None]
  - PAIN [None]
  - ULCERATIVE KERATITIS [None]
